FAERS Safety Report 5089559-1 (Version None)
Quarter: 2006Q3

REPORT INFORMATION
  Report Type: 
  Country: None (occurrence: None)
  Receive Date: 20060727
  Receipt Date: 20060605
  Transmission Date: 20061208
  Serious: Yes (Other)
  Sender: FDA-Public Use
  Company Number: 2006073820

PATIENT
  Age: 57 Year
  Sex: Male
  Weight: 90.7194 kg

DRUGS (10)
  1. LYRICA [Suspect]
     Indication: NEURALGIA
     Dosage: 225 MG (75 MG, 3 IN 1 D), ORAL
     Route: 048
     Dates: start: 20060101
  2. FENTANYL [Concomitant]
  3. TOPROL-XL [Concomitant]
  4. VALSARTAN [Concomitant]
  5. ACIPHEX [Concomitant]
  6. HYDROCHLOROTHIAZIDE [Concomitant]
  7. METHADONE HCL [Concomitant]
  8. ZOLOFT [Concomitant]
  9. SOMA [Concomitant]
  10. ACETAMINOPHEN [Concomitant]

REACTIONS (2)
  - CYANOPSIA [None]
  - ILL-DEFINED DISORDER [None]
